FAERS Safety Report 19271209 (Version 1)
Quarter: 2021Q2

REPORT INFORMATION
  Report Type: Spontaneous
  Country: FR (occurrence: FR)
  Receive Date: 20210518
  Receipt Date: 20210518
  Transmission Date: 20210717
  Serious: Yes (Hospitalization)
  Sender: FDA-Public Use
  Company Number: FR-ROCHE-2832404

PATIENT
  Age: 68 Year
  Sex: Male

DRUGS (1)
  1. ROACTEMRA [Suspect]
     Active Substance: TOCILIZUMAB
     Indication: COVID-19 TREATMENT
     Dosage: DATE OF THE MOST RECENT DOSE RECEIVED PRIOR TO THE EVENT ONSET: 27/MAR/2021
     Route: 042
     Dates: start: 20210327

REACTIONS (1)
  - Agranulocytosis [Recovering/Resolving]

NARRATIVE: CASE EVENT DATE: 20210408
